FAERS Safety Report 4745395-4 (Version None)
Quarter: 2005Q3

REPORT INFORMATION
  Report Type: 
  Country: None (occurrence: None)
  Receive Date: 20050815
  Receipt Date: 20050802
  Transmission Date: 20060218
  Serious: Yes (Other)
  Sender: FDA-Public Use
  Company Number: 2005109704

PATIENT
  Age: 20 Year
  Sex: Female

DRUGS (2)
  1. BENADRYL [Suspect]
     Indication: SINUS DISORDER
     Dosage: RECOMMENDED DOSAGE ONE TIME, ORAL
     Route: 048
     Dates: start: 20050701, end: 20050701
  2. IBUPROFEN [Suspect]
     Indication: PAIN
     Dosage: ORAL
     Route: 048

REACTIONS (3)
  - HYPERSENSITIVITY [None]
  - PAIN [None]
  - REACTION TO PRESERVATIVES [None]
